FAERS Safety Report 7475454-7 (Version None)
Quarter: 2011Q2

REPORT INFORMATION
  Report Type: 
  Country: None (occurrence: None)
  Receive Date: 20110512
  Receipt Date: 20110504
  Transmission Date: 20111010
  Serious: Yes (Hospitalization, Other)
  Sender: FDA-Public Use
  Company Number: US-ABBOTT-11P-163-0701111-00

PATIENT
  Weight: 81.72 kg

DRUGS (12)
  1. CLARITHROMYCIN [Suspect]
     Indication: SINUSITIS
     Dates: start: 20091014, end: 20091028
  2. PRAVACHOL [Concomitant]
     Indication: BLOOD CHOLESTEROL INCREASED
  3. RAMIPRIL [Concomitant]
     Indication: PRODUCT USED FOR UNKNOWN INDICATION
     Dosage: AT BEDTIME
  4. CARAFATE [Concomitant]
     Indication: PRODUCT USED FOR UNKNOWN INDICATION
  5. STEROIDS [Suspect]
     Indication: NEPHRITIS
     Dates: start: 20091201, end: 20101201
  6. LOPID [Concomitant]
     Indication: BLOOD TRIGLYCERIDES INCREASED
  7. PREDNISONE [Concomitant]
     Indication: PRODUCT USED FOR UNKNOWN INDICATION
  8. RENVELA [Concomitant]
     Indication: PRODUCT USED FOR UNKNOWN INDICATION
     Dosage: WITH MEALS
  9. PANTOPRAZOLE SODIUM [Concomitant]
     Indication: PRODUCT USED FOR UNKNOWN INDICATION
  10. NYSTATIN [Concomitant]
     Indication: PRODUCT USED FOR UNKNOWN INDICATION
     Dosage: 10000 UNIT/ML SWISH AND SWALLOW
  11. K-DUR [Concomitant]
     Indication: PRODUCT USED FOR UNKNOWN INDICATION
  12. LOVAZA [Concomitant]
     Indication: PRODUCT USED FOR UNKNOWN INDICATION

REACTIONS (24)
  - FEELING ABNORMAL [None]
  - DECREASED APPETITE [None]
  - URINE ANALYSIS ABNORMAL [None]
  - RESPIRATORY DISTRESS [None]
  - KIDNEY FIBROSIS [None]
  - DYSGEUSIA [None]
  - CHEST DISCOMFORT [None]
  - ASTHENIA [None]
  - RETCHING [None]
  - VOMITING [None]
  - BLOOD POTASSIUM DECREASED [None]
  - RENAL FAILURE ACUTE [None]
  - TUBULOINTERSTITIAL NEPHRITIS [None]
  - GLOMERULONEPHRITIS [None]
  - EPISTAXIS [None]
  - NEPHRITIS [None]
  - WEGENER'S GRANULOMATOSIS [None]
  - SINUS DISORDER [None]
  - ABNORMAL LOSS OF WEIGHT [None]
  - DYSPNOEA [None]
  - BLOOD COUNT ABNORMAL [None]
  - NAUSEA [None]
  - FATIGUE [None]
  - MALAISE [None]
